FAERS Safety Report 4613959-4 (Version None)
Quarter: 2005Q1

REPORT INFORMATION
  Report Type: 
  Country: None (occurrence: None)
  Receive Date: 20050321
  Receipt Date: 20040424
  Transmission Date: 20050727
  Serious: Yes (Hospitalization)
  Sender: FDA-Public Use
  Company Number: BE-JNJFOC-20040405493

PATIENT
  Age: 22 Year
  Sex: Female

DRUGS (2)
  1. PROPULSID [Suspect]
     Route: 049
     Dates: start: 20030125
  2. PROPULSID [Suspect]
     Route: 049
     Dates: start: 20030125

REACTIONS (2)
  - IMPAIRED GASTRIC EMPTYING [None]
  - OESOPHAGITIS [None]
